FAERS Safety Report 5827948-5 (Version None)
Quarter: 2008Q3

REPORT INFORMATION
  Report Type: 
  Country: None (occurrence: None)
  Receive Date: 20080725
  Receipt Date: 20080710
  Transmission Date: 20090109
  Serious: Yes (Hospitalization)
  Sender: FDA-Public Use
  Company Number: 2008BI017427

PATIENT
  Age: 46 Year
  Sex: Female
  Weight: 57.6 kg

DRUGS (4)
  1. TYSABRI [Suspect]
     Indication: MULTIPLE SCLEROSIS
     Dosage: 300 MG; QM; IV
     Route: 042
     Dates: start: 20070716
  2. BUPROPION HCL [Concomitant]
  3. AVONEX [Concomitant]
  4. COPAXONE [Concomitant]

REACTIONS (8)
  - ADRENAL CYST [None]
  - BENIGN NEOPLASM OF ADRENAL GLAND [None]
  - HYPERCALCAEMIA [None]
  - HYPERPARATHYROIDISM [None]
  - MULTIPLE ENDOCRINE ADENOMATOSIS TYPE I [None]
  - OSTEOPOROSIS [None]
  - PARATHYROID TUMOUR BENIGN [None]
  - THYROID DISORDER [None]
